FAERS Safety Report 16779157 (Version 1)
Quarter: 2019Q3

REPORT INFORMATION
  Report Type: Spontaneous
  Country: ES (occurrence: ES)
  Receive Date: 20190906
  Receipt Date: 20190906
  Transmission Date: 20191005
  Serious: Yes (Other)
  Sender: FDA-Public Use
  Company Number: ES-ROCHE-2398554

PATIENT
  Age: 72 Year
  Sex: Female

DRUGS (3)
  1. ORFIDAL [Suspect]
     Active Substance: LORAZEPAM
     Indication: ANXIETY
     Dosage: 1 MG, UNK
     Route: 065
  2. VALIUM [Suspect]
     Active Substance: DIAZEPAM
     Indication: PRODUCT USED FOR UNKNOWN INDICATION
     Dosage: UNK
     Route: 065
  3. LEXATIN (BROMAZEPAM) [Suspect]
     Active Substance: BROMAZEPAM
     Indication: PRODUCT USED FOR UNKNOWN INDICATION
     Dosage: IN THE MORNING
     Route: 065

REACTIONS (7)
  - Insomnia [Unknown]
  - Anger [Unknown]
  - Dementia Alzheimer^s type [Unknown]
  - Bipolar disorder [Unknown]
  - Agoraphobia [Unknown]
  - Rebound effect [Unknown]
  - Hypotension [Unknown]
